FAERS Safety Report 16833772 (Version 4)
Quarter: 2020Q2

REPORT INFORMATION
  Report Type: Spontaneous
  Country: NL (occurrence: NL)
  Receive Date: 20190920
  Receipt Date: 20200430
  Transmission Date: 20200713
  Serious: Yes (Hospitalization)
  Sender: FDA-Public Use
  Company Number: PHHY2019NL215353

PATIENT
  Age: 54 Year
  Sex: Female
  Weight: 84.5 kg

DRUGS (26)
  1. PLACEBO [Suspect]
     Active Substance: UNSPECIFIED INGREDIENT
     Indication: HYPERTRIGLYCERIDAEMIA
     Dosage: DAILY
     Route: 048
     Dates: start: 20150827, end: 20160630
  2. PLACEBO [Suspect]
     Active Substance: UNSPECIFIED INGREDIENT
     Dosage: DAILY
     Route: 048
     Dates: start: 20161026, end: 20170216
  3. PLACEBO [Suspect]
     Active Substance: UNSPECIFIED INGREDIENT
     Dosage: DAILY
     Route: 048
     Dates: start: 20190920
  4. DAPAGLIFLOZINE [Suspect]
     Active Substance: DAPAGLIFLOZIN
     Indication: DIABETES MELLITUS
     Dosage: 10 MG, QD
     Route: 048
     Dates: start: 20170510, end: 20190701
  5. EPANOVA [Suspect]
     Active Substance: OMEGA-3-CARBOXYLIC ACIDS
     Dosage: 4 G, QD
     Route: 048
     Dates: start: 20160708, end: 20161005
  6. FISH OIL [Concomitant]
     Active Substance: FISH OIL
     Dosage: 4 G, QD
     Route: 048
     Dates: start: 20160708, end: 20161005
  7. METFORMIN [Suspect]
     Active Substance: METFORMIN HYDROCHLORIDE
     Dosage: 1000 MG, Q8H
     Route: 048
     Dates: start: 20181206, end: 20190701
  8. ATORVASTATIN [Concomitant]
     Active Substance: ATORVASTATIN
     Indication: HYPERCHOLESTEROLAEMIA
     Dosage: 40 MG, QD
     Route: 048
     Dates: start: 201312
  9. METFORMIN [Suspect]
     Active Substance: METFORMIN HYDROCHLORIDE
     Dosage: 1000 MG, Q8H
     Route: 048
     Dates: start: 20190819, end: 20190824
  10. HYDROCHLOROTHIAZIDE. [Concomitant]
     Active Substance: HYDROCHLOROTHIAZIDE
     Indication: HYPERTENSION
     Dosage: 13 MG, QD
     Route: 048
     Dates: start: 20160427
  11. FISH OIL [Concomitant]
     Active Substance: FISH OIL
     Indication: PRODUCT USED FOR UNKNOWN INDICATION
     Dosage: 4 G, QD
     Route: 048
     Dates: start: 20150827, end: 20160630
  12. FISH OIL [Concomitant]
     Active Substance: FISH OIL
     Dosage: 4 G, QD
     Route: 048
     Dates: start: 20170803, end: 20190824
  13. METFORMIN [Suspect]
     Active Substance: METFORMIN HYDROCHLORIDE
     Indication: DIABETES MELLITUS
     Dosage: 1000 MG, Q12H
     Route: 048
     Dates: start: 2001, end: 20160803
  14. EPANOVA [Suspect]
     Active Substance: OMEGA-3-CARBOXYLIC ACIDS
     Dosage: 4 G, QD
     Route: 048
     Dates: start: 20170803, end: 20190823
  15. METFORMIN [Suspect]
     Active Substance: METFORMIN HYDROCHLORIDE
     Dosage: 500 MG, Q8H
     Route: 048
     Dates: start: 20170407, end: 20180121
  16. PLACEBO [Suspect]
     Active Substance: UNSPECIFIED INGREDIENT
     Dosage: DAILY
     Route: 048
     Dates: start: 20160708, end: 20161005
  17. PLACEBO [Suspect]
     Active Substance: UNSPECIFIED INGREDIENT
     Dosage: DAILY
     Route: 048
     Dates: start: 20170803, end: 20190823
  18. METFORMIN [Suspect]
     Active Substance: METFORMIN HYDROCHLORIDE
     Dosage: 1000 MG, Q12H
     Route: 048
     Dates: start: 20180122, end: 20181205
  19. DAPAGLIFLOZINE [Suspect]
     Active Substance: DAPAGLIFLOZIN
     Dosage: 10 MG, QD
     Route: 048
     Dates: start: 20190820, end: 20190824
  20. EPANOVA [Suspect]
     Active Substance: OMEGA-3-CARBOXYLIC ACIDS
     Dosage: 4 G, QD
     Route: 048
     Dates: start: 20161026, end: 20170216
  21. FISH OIL [Concomitant]
     Active Substance: FISH OIL
     Dosage: 4 G, QD
     Route: 048
     Dates: start: 20161026, end: 20170216
  22. METFORMIN [Suspect]
     Active Substance: METFORMIN HYDROCHLORIDE
     Dosage: 500 MG, Q12H
     Route: 048
     Dates: start: 20160804, end: 20170406
  23. EPANOVA [Suspect]
     Active Substance: OMEGA-3-CARBOXYLIC ACIDS
     Indication: HYPERTRIGLYCERIDAEMIA
     Dosage: 4 G, QD
     Route: 048
     Dates: start: 20150827, end: 20160630
  24. EPANOVA [Suspect]
     Active Substance: OMEGA-3-CARBOXYLIC ACIDS
     Dosage: 4 G, QD
     Route: 048
     Dates: start: 20190827, end: 20190830
  25. EPANOVA [Suspect]
     Active Substance: OMEGA-3-CARBOXYLIC ACIDS
     Dosage: 4 G, QD
     Route: 048
     Dates: start: 20190920
  26. FISH OIL [Concomitant]
     Active Substance: FISH OIL
     Dosage: 4 G, QD
     Route: 048
     Dates: start: 20190827, end: 20190830

REACTIONS (1)
  - Diabetic ketoacidosis [Recovered/Resolved]

NARRATIVE: CASE EVENT DATE: 20190824
